FAERS Safety Report 25927237 (Version 1)
Quarter: 2025Q4

REPORT INFORMATION
  Report Type: Spontaneous
  Country: US (occurrence: US)
  Receive Date: 20251015
  Receipt Date: 20251015
  Transmission Date: 20260118
  Serious: Yes (Other)
  Sender: APELLIS PHARMACEUTICALS
  Company Number: US-APELLIS-2025-APL-0001831

PATIENT

DRUGS (7)
  1. SYFOVRE [Suspect]
     Active Substance: PEGCETACOPLAN
     Indication: Dry age-related macular degeneration
     Dosage: OD, INTRAVITREAL INJECTION, Q9WKS, 15MG/0.1 ML
     Route: 031
  2. SYFOVRE [Suspect]
     Active Substance: PEGCETACOPLAN
     Dosage: OS, INTRAVITREAL, Q9WKS, 15MG/0.1 ML
     Route: 031
  3. MINERALS\VITAMINS [Concomitant]
     Active Substance: MINERALS\VITAMINS
     Indication: Product used for unknown indication
     Dosage: 1 TABLET BID BY MOUTH
     Route: 048
  4. BIOTRUE HYDRATION BOOST [Concomitant]
     Active Substance: GLYCERIN
     Indication: Product used for unknown indication
     Dosage: SINGLE USE LUBRICATING DROPS 1 GTT PRN OU
     Route: 050
  5. LISINOPRIL [Concomitant]
     Active Substance: LISINOPRIL
     Indication: Product used for unknown indication
     Dosage: 10 MG ORAL TABLET 1 QDAY
     Route: 048
  6. CALCIUM [Concomitant]
     Active Substance: CALCIUM
     Indication: Product used for unknown indication
     Dosage: 600 MG 1 TABLET QDAY BY MOUTH
     Route: 048
  7. MINERALS\VITAMINS [Concomitant]
     Active Substance: MINERALS\VITAMINS
     Indication: Product used for unknown indication
     Dosage: 1 TABLET QDAY BY MOUTH
     Route: 048

REACTIONS (6)
  - Endophthalmitis [Recovering/Resolving]
  - Vision blurred [Unknown]
  - Photophobia [Unknown]
  - Condition aggravated [Unknown]
  - Vitreous floaters [Unknown]
  - Vision blurred [Unknown]
